FAERS Safety Report 26183416 (Version 1)
Quarter: 2025Q4

REPORT INFORMATION
  Report Type: Spontaneous
  Country: US (occurrence: US)
  Receive Date: 20251221
  Receipt Date: 20251221
  Transmission Date: 20260117
  Serious: Yes (Hospitalization, Other)
  Sender: SANOFI AVENTIS
  Company Number: US-SA-2025SA376238

PATIENT
  Age: 61 Year
  Sex: Female

DRUGS (23)
  1. DUPIXENT [Suspect]
     Active Substance: DUPILUMAB
     Indication: Dermatitis atopic
     Dosage: 300 MG, QOW
     Route: 058
     Dates: end: 2025
  2. DUPIXENT [Suspect]
     Active Substance: DUPILUMAB
     Dosage: 300 MG, QOW
     Route: 058
     Dates: start: 20251205
  3. ATORVASTATIN [Concomitant]
     Active Substance: ATORVASTATIN
  4. CETIRIZINE [Concomitant]
     Active Substance: CETIRIZINE HYDROCHLORIDE
  5. DIPHENHYDRAMINE [Concomitant]
     Active Substance: DIPHENHYDRAMINE
  6. ESOMEPRAZOLE [Concomitant]
     Active Substance: ESOMEPRAZOLE
  7. ESTRADIOL [Concomitant]
     Active Substance: ESTRADIOL
  8. FAMOTIDINE [Concomitant]
     Active Substance: FAMOTIDINE
  9. FLUBLOK [Concomitant]
     Active Substance: INFLUENZA VIRUS VACCINE
  10. FLUTICASONE [Concomitant]
     Active Substance: FLUTICASONE
  11. GABAPENTIN [Concomitant]
     Active Substance: GABAPENTIN
  12. HYDROXYZINE [Concomitant]
     Active Substance: HYDROXYZINE HYDROCHLORIDE
  13. LAMOTRIGINE [Concomitant]
     Active Substance: LAMOTRIGINE
  14. LOSARTAN POTASSIUM [Concomitant]
     Active Substance: LOSARTAN POTASSIUM
  15. MIRTAZAPINE [Concomitant]
     Active Substance: MIRTAZAPINE
  16. MONTELUKAST [Concomitant]
     Active Substance: MONTELUKAST
  17. OLOPATADINE [Concomitant]
     Active Substance: OLOPATADINE
  18. ONDANSETRON [Concomitant]
     Active Substance: ONDANSETRON
  19. TRAZODONE [Concomitant]
     Active Substance: TRAZODONE HYDROCHLORIDE
  20. TYLENOL [Concomitant]
     Active Substance: ACETAMINOPHEN
  21. VENLAFAXINE [Concomitant]
     Active Substance: VENLAFAXINE HYDROCHLORIDE
  22. HYDROXYZINE [Concomitant]
     Active Substance: HYDROXYZINE HYDROCHLORIDE
  23. TRIAMCINOLONE [Concomitant]
     Active Substance: TRIAMCINOLONE

REACTIONS (10)
  - Vascular graft [Unknown]
  - Fatigue [Not Recovered/Not Resolved]
  - Asthenopia [Not Recovered/Not Resolved]
  - Depression [Not Recovered/Not Resolved]
  - Arthropathy [Not Recovered/Not Resolved]
  - Sluggishness [Not Recovered/Not Resolved]
  - Psychiatric symptom [Not Recovered/Not Resolved]
  - Headache [Not Recovered/Not Resolved]
  - Diarrhoea [Not Recovered/Not Resolved]
  - Rash [Recovering/Resolving]

NARRATIVE: CASE EVENT DATE: 20250101
